FAERS Safety Report 8887114 (Version 1)
Quarter: 2012Q4

REPORT INFORMATION
  Report Type: 
  Country: US (occurrence: US)
  Receive Date: 20121105
  Receipt Date: 20121105
  Transmission Date: 20130627
  Serious: Yes (Hospitalization)
  Sender: FDA-Public Use
  Company Number: US-GLAXOSMITHKLINE-A0998784A

PATIENT
  Sex: Female
  Weight: 1.7 kg

DRUGS (3)
  1. NICORETTE [Suspect]
     Route: 064
  2. NICORETTE [Suspect]
     Route: 064
  3. NICODERM CQ [Suspect]
     Route: 064

REACTIONS (1)
  - Adverse event [Unknown]
